FAERS Safety Report 25552255 (Version 2)
Quarter: 2025Q3

REPORT INFORMATION
  Report Type: Spontaneous
  Country: EU (occurrence: EU)
  Receive Date: 20250715
  Receipt Date: 20250806
  Transmission Date: 20251021
  Serious: Yes (Death, Life-Threatening, Hospitalization, Other)
  Sender: ALEXION PHARMACEUTICALS
  Company Number: EU-AstraZeneca-CH-00888000A

PATIENT
  Age: 77 Year
  Sex: Male
  Weight: 82 kg

DRUGS (4)
  1. DURVALUMAB [Suspect]
     Active Substance: DURVALUMAB
     Indication: Hepatocellular carcinoma
  2. TREMELIMUMAB [Suspect]
     Active Substance: TREMELIMUMAB
     Indication: Hepatocellular carcinoma
  3. PREDNISONE [Concomitant]
     Active Substance: PREDNISONE
     Route: 065
  4. Immunoglobulin [Concomitant]
     Dates: start: 20250527, end: 20250601

REACTIONS (9)
  - Myocarditis [Fatal]
  - Myasthenia gravis [Fatal]
  - Myositis [Fatal]
  - Hepatitis acute [Fatal]
  - Cyst [Unknown]
  - Flatulence [Unknown]
  - Liver disorder [Unknown]
  - Neurological decompensation [Unknown]
  - Myasthenia gravis [Unknown]

NARRATIVE: CASE EVENT DATE: 20250522
